FAERS Safety Report 4720804-5 (Version None)
Quarter: 2005Q3

REPORT INFORMATION
  Report Type: 
  Country: None (occurrence: None)
  Receive Date: 20050719
  Receipt Date: 20050708
  Transmission Date: 20060218
  Serious: Yes (Hospitalization, Other)
  Sender: FDA-Public Use
  Company Number: 2005098832

PATIENT
  Age: 85 Year
  Sex: Female

DRUGS (1)
  1. CADUET [Suspect]
     Indication: ILL-DEFINED DISORDER
     Dosage: ORAL
     Route: 048

REACTIONS (3)
  - ESCHERICHIA INFECTION [None]
  - RHABDOMYOLYSIS [None]
  - SEPSIS [None]
